FAERS Safety Report 5643503-4 (Version None)
Quarter: 2008Q1

REPORT INFORMATION
  Report Type: 
  Country: None (occurrence: None)
  Receive Date: 20080228
  Receipt Date: 20080228
  Transmission Date: 20080703
  Serious: Yes (Hospitalization, Disabling)
  Sender: FDA-Public Use
  Company Number: JP-BOEHRINGER INGELHEIM GMBH, GERMANY-2008-BP-00941NB

PATIENT
  Sex: Female
  Weight: 75.2 kg

DRUGS (4)
  1. MICARDIS [Suspect]
     Indication: HYPERTENSION
     Route: 048
     Dates: start: 20080107, end: 20080115
  2. ANPLAG [Concomitant]
     Indication: ARTERIOSCLEROSIS OBLITERANS
     Route: 048
     Dates: start: 20080107, end: 20080115
  3. TAKEPRON [Concomitant]
     Indication: GASTRIC DISORDER
     Route: 048
     Dates: start: 20080107, end: 20080121
  4. NORVASC [Concomitant]
     Indication: HYPERTENSION
     Route: 048
     Dates: start: 20080107, end: 20080121

REACTIONS (2)
  - CARDIAC FAILURE [None]
  - RENAL FAILURE [None]
